FAERS Safety Report 8237271-X (Version None)
Quarter: 2012Q1

REPORT INFORMATION
  Report Type: 
  Country: None (occurrence: None)
  Receive Date: 20120327
  Receipt Date: 20120327
  Transmission Date: 20120608
  Serious: Yes (Other)
  Sender: FDA-Public Use
  Company Number: None

PATIENT
  Age: 17 Year
  Sex: Male
  Weight: 102.3 kg

DRUGS (2)
  1. LINEZOLID [Suspect]
     Indication: POSTOPERATIVE WOUND INFECTION
     Dosage: 600
     Route: 048
     Dates: start: 20111024, end: 20120222
  2. LINEZOLID [Concomitant]

REACTIONS (1)
  - PARAESTHESIA [None]
